FAERS Safety Report 8622889-2 (Version None)
Quarter: 2012Q3

REPORT INFORMATION
  Report Type: 
  Country: None (occurrence: None)
  Receive Date: 20120827
  Receipt Date: 20120815
  Transmission Date: 20120928
  Serious: Yes (Death, Other)
  Sender: FDA-Public Use
  Company Number: US-009507513-1208USA008238

PATIENT

DRUGS (1)
  1. SAPHRIS [Suspect]

REACTIONS (1)
  - MYOCARDIAL INFARCTION [None]
